FAERS Safety Report 7992050-3 (Version None)
Quarter: 2011Q4

REPORT INFORMATION
  Report Type: 
  Country: None (occurrence: None)
  Receive Date: 20111219
  Receipt Date: 20110907
  Transmission Date: 20120403
  Serious: No
  Sender: FDA-Public Use
  Company Number: US-ASTRAZENECA-2011SE53634

PATIENT
  Age: 89 Year
  Sex: Female
  Weight: 44.9 kg

DRUGS (1)
  1. CRESTOR [Suspect]
     Indication: BLOOD CHOLESTEROL ABNORMAL
     Route: 048
     Dates: start: 20110815

REACTIONS (3)
  - DIZZINESS [None]
  - HEADACHE [None]
  - DRUG PRESCRIBING ERROR [None]
